FAERS Safety Report 18117498 (Version 3)
Quarter: 2020Q3

REPORT INFORMATION
  Report Type: Other
  Country: SG (occurrence: SG)
  Receive Date: 20200806
  Receipt Date: 20200917
  Transmission Date: 20201103
  Serious: Yes (Death, Other)
  Sender: FDA-Public Use
  Company Number: SG-ROCHE-2652709

PATIENT
  Age: 66 Year
  Sex: Female

DRUGS (2)
  1. ACTILYSE [Suspect]
     Active Substance: ALTEPLASE
     Indication: DURAL ARTERIOVENOUS FISTULA
     Dosage: INITIAL BOLUS OF 10 PERCENT OF THE INTENDED DOSE OF 0.9MG/KG BODYWEIGHT
     Route: 042
  2. ACTILYSE [Suspect]
     Active Substance: ALTEPLASE
     Dosage: FOLLOWED BY INFUSING THE REMAINING 90 PERCENT OVER AN HOUR
     Route: 042

REACTIONS (4)
  - Cerebral haematoma [Fatal]
  - Cerebrovascular stenosis [Unknown]
  - Brain herniation [Unknown]
  - Intracranial mass [Unknown]
